FAERS Safety Report 13539003 (Version 2)
Quarter: 2017Q3

REPORT INFORMATION
  Report Type: Spontaneous
  Country: US (occurrence: US)
  Receive Date: 20170512
  Receipt Date: 20170707
  Transmission Date: 20171127
  Serious: No
  Sender: FDA-Public Use
  Company Number: US-JNJFOC-20170501007

PATIENT
  Sex: Male
  Weight: 108.86 kg

DRUGS (1)
  1. INVEGA [Suspect]
     Active Substance: PALIPERIDONE
     Indication: PRODUCT USED FOR UNKNOWN INDICATION
     Route: 048
     Dates: start: 2009, end: 201001

REACTIONS (6)
  - Treatment noncompliance [Unknown]
  - Off label use [Unknown]
  - Palpitations [Unknown]
  - Constipation [Unknown]
  - Hernia [Unknown]
  - Product use in unapproved indication [Unknown]
